FAERS Safety Report 17646412 (Version 1)
Quarter: 2020Q2

REPORT INFORMATION
  Report Type: Spontaneous
  Country: CR (occurrence: CR)
  Receive Date: 20200408
  Receipt Date: 20200408
  Transmission Date: 20200713
  Serious: Yes (Death)
  Sender: FDA-Public Use
  Company Number: CR-PFIZER INC-2020143542

PATIENT
  Age: 89 Year
  Sex: Female

DRUGS (2)
  1. ERANZ [Suspect]
     Active Substance: DONEPEZIL HYDROCHLORIDE
  2. PRISTIQ EXTENDED-RELEASE [Suspect]
     Active Substance: DESVENLAFAXINE SUCCINATE

REACTIONS (1)
  - Death [Fatal]
